FAERS Safety Report 22059848 (Version 2)
Quarter: 2023Q2

REPORT INFORMATION
  Report Type: Spontaneous
  Country: GB (occurrence: GB)
  Receive Date: 20230303
  Receipt Date: 20230420
  Transmission Date: 20230722
  Serious: Yes (Hospitalization)
  Sender: FDA-Public Use
  Company Number: GB-CHIESI-2023CHF01061

PATIENT
  Sex: Male

DRUGS (1)
  1. TOBRAMYCIN [Suspect]
     Active Substance: TOBRAMYCIN
     Indication: Cystic fibrosis
     Dosage: 1 DOSAGE FORM, BID
     Route: 055

REACTIONS (2)
  - Lower respiratory tract infection [Unknown]
  - Product dose omission issue [Unknown]
